FAERS Safety Report 25814608 (Version 1)
Quarter: 2025Q3

REPORT INFORMATION
  Report Type: Spontaneous
  Country: AU (occurrence: AU)
  Receive Date: 20250917
  Receipt Date: 20250917
  Transmission Date: 20251021
  Serious: Yes (Other)
  Sender: MEDIMETRIKS
  Company Number: AU-MEDIMETRIKS-2025-AU-000136

PATIENT
  Age: 76 Year
  Sex: Male

DRUGS (6)
  1. VANCOMYCIN [Suspect]
     Active Substance: VANCOMYCIN
     Indication: Staphylococcal infection
     Route: 042
  2. METHOTREXATE [Suspect]
     Active Substance: METHOTREXATE
     Indication: Central nervous system lymphoma
  3. RITUXIMAB [Concomitant]
     Active Substance: RITUXIMAB
  4. PROCARBAZINE [Concomitant]
     Active Substance: PROCARBAZINE
  5. MOXIFLOXACIN [Concomitant]
     Active Substance: MOXIFLOXACIN
  6. VINCRISTINE [Concomitant]
     Active Substance: VINCRISTINE

REACTIONS (2)
  - Acute kidney injury [Unknown]
  - Drug interaction [Unknown]
